FAERS Safety Report 7880528-2 (Version None)
Quarter: 2011Q4

REPORT INFORMATION
  Report Type: 
  Country: None (occurrence: None)
  Receive Date: 20111101
  Receipt Date: 20111027
  Transmission Date: 20120403
  Serious: Yes (Other)
  Sender: FDA-Public Use
  Company Number: PHEH2011US08032

PATIENT
  Sex: Female
  Weight: 150 kg

DRUGS (1)
  1. TOBI [Suspect]
     Indication: PSEUDOMONAS INFECTION
     Dosage: 300 MG, BID, 2 WEEKS ON/2 WEEKS OFF

REACTIONS (1)
  - BRONCHIECTASIS [None]
